FAERS Safety Report 10787504 (Version 1)
Quarter: 2015Q1

REPORT INFORMATION
  Report Type: Spontaneous
  Country: US (occurrence: US)
  Receive Date: 20150212
  Receipt Date: 20150212
  Transmission Date: 20150721
  Serious: Yes (Other)
  Sender: FDA-Public Use
  Company Number: US-SUN PHARMACEUTICAL INDUSTRIES LTD-2015SUN00373

PATIENT

DRUGS (1)
  1. LETROZOLE TABS 2.5MG [Suspect]
     Active Substance: LETROZOLE
     Indication: BREAST CANCER STAGE II
     Dosage: 2.5 MG, DAILY
     Route: 065

REACTIONS (1)
  - Recall phenomenon [Recovered/Resolved]

NARRATIVE: CASE EVENT DATE: 20121210
